FAERS Safety Report 7296233-X (Version None)
Quarter: 2011Q1

REPORT INFORMATION
  Report Type: 
  Country: None (occurrence: None)
  Receive Date: 20110216
  Receipt Date: 20110209
  Transmission Date: 20110831
  Serious: Yes (Death, Hospitalization)
  Sender: FDA-Public Use
  Company Number: JP-ELI_LILLY_AND_COMPANY-JP201102002161

PATIENT
  Age: 42 Year
  Sex: Male
  Weight: 61 kg

DRUGS (11)
  1. RIVOTRIL [Concomitant]
     Dosage: 1 MG, DAILY (1/D)
     Route: 048
  2. LIVACT [Concomitant]
     Dosage: 12 G, DAILY (1/D)
     Route: 048
  3. PHENOBAL [Concomitant]
     Dosage: 60 MG, DAILY (1/D)
     Route: 048
  4. CONSTAN [Concomitant]
     Dosage: 1.6 MG, DAILY (1/D)
     Route: 048
  5. HALCION [Concomitant]
     Dosage: 0.25 MG, DAILY (1/D)
     Route: 048
  6. SELBEX [Concomitant]
     Dosage: 150 MG, DAILY (1/D)
     Route: 048
  7. GEMZAR [Suspect]
     Indication: GALLBLADDER CANCER STAGE IV
     Dosage: 1400 MG, UNK
     Route: 042
     Dates: start: 20090123
  8. URSO 250 [Concomitant]
     Dosage: 900 MG, DAILY (1/D)
     Route: 048
  9. THEO-DUR [Concomitant]
     Dosage: 400 MG, DAILY (1/D)
     Route: 048
  10. KIPRES [Concomitant]
     Dosage: 10 MG, DAILY (1/D)
     Route: 048
  11. LASIX [Concomitant]
     Dosage: 40 MG, DAILY (1/D)
     Route: 048

REACTIONS (2)
  - CHOLANGITIS [None]
  - NEOPLASM MALIGNANT [None]
